FAERS Safety Report 5275839-3 (Version None)
Quarter: 2007Q1

REPORT INFORMATION
  Report Type: 
  Country: None (occurrence: None)
  Receive Date: 20070326
  Receipt Date: 20070313
  Transmission Date: 20070707
  Serious: Yes (Hospitalization)
  Sender: FDA-Public Use
  Company Number: US-JNJFOC-20070303226

PATIENT
  Sex: Male
  Weight: 63 kg

DRUGS (8)
  1. TYLENOL W/ CODEINE [Suspect]
     Indication: DRUG USE FOR UNKNOWN INDICATION
     Route: 048
  2. LEUKINE [Suspect]
     Route: 058
  3. LEUKINE [Suspect]
     Route: 058
  4. LEUKINE [Suspect]
     Route: 058
  5. LEUKINE [Suspect]
     Route: 058
  6. LEUKINE [Suspect]
     Indication: CROHN'S DISEASE
     Route: 058
  7. XANAX [Concomitant]
  8. ACIPHEX [Concomitant]

REACTIONS (1)
  - HEPATITIS ALCOHOLIC [None]
